FAERS Safety Report 6343445-5 (Version None)
Quarter: 2009Q3

REPORT INFORMATION
  Report Type: 
  Country: None (occurrence: None)
  Receive Date: 20090908
  Receipt Date: 20071211
  Transmission Date: 20100115
  Serious: Yes (Death, Hospitalization)
  Sender: FDA-Public Use
  Company Number: FR-PFIZER INC-2007104451

PATIENT
  Age: 75 Year

DRUGS (6)
  1. SUNITINIB MALATE [Suspect]
     Indication: PANCREATIC CARCINOMA
     Dosage: 37.5 MG, 1X/DAY
     Route: 048
     Dates: start: 20070926, end: 20071029
  2. SUNITINIB MALATE [Suspect]
     Dosage: 37.5 MG, 1X/DAY
     Route: 048
     Dates: start: 20071107, end: 20071207
  3. INSULIN GLARGINE [Concomitant]
     Route: 058
     Dates: start: 20001201
  4. ESOMEPRAZOLE [Concomitant]
     Route: 048
     Dates: start: 20060801
  5. PERINDOPRIL [Concomitant]
     Route: 048
     Dates: start: 20060801
  6. BECLOMETASONE [Concomitant]

REACTIONS (2)
  - CARDIAC FAILURE [None]
  - DYSPNOEA [None]
